FAERS Safety Report 10055662 (Version 1)
Quarter: 2014Q2

REPORT INFORMATION
  Report Type: Spontaneous
  Country: US (occurrence: None)
  Receive Date: 20140402
  Receipt Date: 20140402
  Transmission Date: 20141212
  Serious: Yes (Hospitalization, Other)
  Sender: FDA-Public Use
  Company Number: None

PATIENT
  Age: 27 Week
  Sex: Male
  Weight: 81.65 kg

DRUGS (3)
  1. HYDROCODONE/APAP [Suspect]
     Indication: INSOMNIA
     Route: 048
  2. HYDROCODONE/APAP [Suspect]
     Indication: CHRONIC SINUSITIS
     Route: 048
  3. HYDROCODONE/APAP [Suspect]
     Indication: NASAL OPERATION
     Route: 048

REACTIONS (1)
  - Therapy cessation [None]
